FAERS Safety Report 13781304 (Version 2)
Quarter: 2017Q3

REPORT INFORMATION
  Report Type: Spontaneous
  Country: US (occurrence: US)
  Receive Date: 20170724
  Receipt Date: 20170823
  Transmission Date: 20171127
  Serious: Yes (Other)
  Sender: FDA-Public Use
  Company Number: US-009507513-1707USA008725

PATIENT

DRUGS (1)
  1. TEMODAR [Suspect]
     Active Substance: TEMOZOLOMIDE
     Indication: GLIOBLASTOMA
     Dosage: AT LEAST 6 MONTHLY CYCLES OF CHEMOTHERAPY
     Route: 048

REACTIONS (2)
  - Bone marrow toxicity [Unknown]
  - Bone marrow failure [Unknown]
